FAERS Safety Report 4526594-3 (Version None)
Quarter: 2004Q4

REPORT INFORMATION
  Report Type: 
  Country: None (occurrence: None)
  Receive Date: 20041213
  Receipt Date: 20041129
  Transmission Date: 20050328
  Serious: Yes (Other)
  Sender: FDA-Public Use
  Company Number: 2004-DE-06004GD

PATIENT

DRUGS (1)
  1. PRAMIPEXOLE (PRAMIPEXOLE DIHYDROCHLORIDE) (PRAMIPEXOLE) [Suspect]

REACTIONS (1)
  - FIBROSIS [None]
